FAERS Safety Report 8742913 (Version 2)
Quarter: 2013Q4

REPORT INFORMATION
  Report Type: Spontaneous
  Country: GB (occurrence: None)
  Receive Date: 20131001
  Receipt Date: 20131001
  Transmission Date: 20140711
  Serious: Yes (Other)
  Sender: FDA-Public Use
  Company Number: 1364706

PATIENT
  Age: 81 Year
  Sex: Male
  Weight: 65 kg

DRUGS (10)
  1. GENTAMICIN SULFATE [Suspect]
     Indication: ANTIBIOTIC PROPHYLAXIS
     Dosage: 200 MG MILLIGRAM(S), INTRAVENOUS (NOT OTHERWISE SPECIFIED)
     Route: 042
  2. PIROXICAM [Suspect]
     Indication: ANALGESIC THERAPY
     Dosage: 20 MG MILLIGRAM(S), ORAL
     Route: 048
     Dates: start: 20120502, end: 20120507
  3. (MEBEVERINE) [Concomitant]
  4. SIMVASTATIN [Concomitant]
  5. QUININE SULFATE [Concomitant]
  6. OMEPRAZOLE [Concomitant]
  7. ASPIRIN [Concomitant]
  8. FELODIPINE [Concomitant]
  9. METRONIDAZOLE [Concomitant]
  10. DOMPERIDONE [Concomitant]

REACTIONS (1)
  - Renal failure acute [None]
